FAERS Safety Report 5463160-X (Version None)
Quarter: 2007Q3

REPORT INFORMATION
  Report Type: 
  Country: None (occurrence: None)
  Receive Date: 20070920
  Receipt Date: 20070914
  Transmission Date: 20080115
  Serious: Yes (Life-Threatening)
  Sender: FDA-Public Use
  Company Number: JP-JNJFOC-20070901078

PATIENT
  Sex: Female

DRUGS (16)
  1. LEVOFLOXACIN [Suspect]
     Indication: CYSTITIS
     Route: 048
  2. FUROSEMIDE [Concomitant]
     Indication: CARDIAC FAILURE CHRONIC
     Route: 048
  3. ALDACTONE [Concomitant]
     Indication: CARDIAC FAILURE CHRONIC
     Route: 048
  4. UNIPHYL [Concomitant]
     Indication: ASTHMA
     Route: 048
  5. VASOLAN [Concomitant]
     Indication: ATRIAL FIBRILLATION
     Route: 048
  6. HEAVY MAGNESIUM OXIDE [Concomitant]
     Indication: CONSTIPATION
     Route: 048
  7. RABEPRAZOLE SODIUM [Concomitant]
     Indication: REFLUX OESOPHAGITIS
     Route: 048
  8. HALFDIGOXIN [Concomitant]
     Indication: ATRIAL FIBRILLATION
     Route: 048
  9. ASPIRIN [Concomitant]
     Indication: MYOCARDIAL INFARCTION
     Route: 048
  10. LOCHOL [Concomitant]
     Indication: HYPERLIPIDAEMIA
     Route: 048
  11. EBASTEL [Concomitant]
     Indication: URTICARIA
     Route: 048
  12. RONFLEMAN [Concomitant]
     Indication: INSOMNIA
     Route: 048
  13. KAKKON-TO [Concomitant]
     Indication: MUSCULOSKELETAL STIFFNESS
     Route: 048
  14. ONON [Concomitant]
     Indication: ASTHMA
     Route: 048
  15. VOGLIBOSE [Concomitant]
     Indication: DIABETES MELLITUS
     Route: 048
  16. FLUTIDE [Concomitant]
     Indication: ASTHMA
     Route: 055

REACTIONS (1)
  - PNEUMONIA [None]
